FAERS Safety Report 24135277 (Version 2)
Quarter: 2024Q3

REPORT INFORMATION
  Report Type: Spontaneous
  Country: JP (occurrence: JP)
  Receive Date: 20240725
  Receipt Date: 20240815
  Transmission Date: 20241017
  Serious: Yes (Other)
  Sender: IPSEN
  Company Number: JP-SERVIER-S24009164

PATIENT
  Age: 72 Year
  Sex: Male

DRUGS (4)
  1. ONIVYDE [Suspect]
     Active Substance: IRINOTECAN HYDROCHLORIDE
     Indication: Pancreatic carcinoma metastatic
     Dosage: 70 MG/M2, EVERY 3 WEEKS
     Route: 042
     Dates: start: 202401, end: 2024
  2. ONIVYDE [Suspect]
     Active Substance: IRINOTECAN HYDROCHLORIDE
     Dosage: 70 MG/M2, EVERY 3 WEEKS
     Route: 042
     Dates: start: 202405, end: 202405
  3. FLUOROURACIL [Concomitant]
     Active Substance: FLUOROURACIL
     Indication: Pancreatic carcinoma metastatic
     Dosage: 2400 MG/M2
     Dates: start: 202401, end: 202405
  4. LEVOLEUCOVORIN CALCIUM [Concomitant]
     Active Substance: LEVOLEUCOVORIN CALCIUM
     Indication: Pancreatic carcinoma metastatic
     Dosage: 200 MG/M2
     Dates: start: 202401, end: 202405

REACTIONS (2)
  - Interstitial lung disease [Recovered/Resolved]
  - Product use issue [Recovered/Resolved]

NARRATIVE: CASE EVENT DATE: 20240101
